FAERS Safety Report 7323083-8 (Version None)
Quarter: 2011Q1

REPORT INFORMATION
  Report Type: 
  Country: None (occurrence: None)
  Receive Date: 20110214
  Receipt Date: 20110202
  Transmission Date: 20110831
  Serious: Yes (Other)
  Sender: FDA-Public Use
  Company Number: 2011SP005878

PATIENT
  Sex: Female

DRUGS (8)
  1. GONADOTROPHINE CHORIONIQUE ENDO (CHORIONIC GONADOTROPHIN) [Suspect]
     Indication: LUTEAL PHASE DEFICIENCY
     Dates: start: 20100407
  2. GONADOTROPHINE CHORIONIQUE ENDO (CHORIONIC GONADOTROPHIN) [Suspect]
     Indication: LUTEAL PHASE DEFICIENCY
     Dates: start: 20100404
  3. GONADOTROPHINE CHORIONIQUE ENDO (CHORIONIC GONADOTROPHIN) [Suspect]
     Indication: LUTEAL PHASE DEFICIENCY
     Dates: start: 20100329
  4. ESBERIVEN [Concomitant]
  5. PROGESTERONE [Concomitant]
  6. ORAVIR [Concomitant]
  7. OROMONE [Concomitant]
  8. TOCOPHEROL CONCENTRATE CAP [Concomitant]

REACTIONS (7)
  - CONDITION AGGRAVATED [None]
  - DIZZINESS [None]
  - GENITAL HERPES [None]
  - MIGRAINE [None]
  - ABORTION SPONTANEOUS [None]
  - MALAISE [None]
  - NAUSEA [None]
